FAERS Safety Report 17965227 (Version 1)
Quarter: 2020Q3

REPORT INFORMATION
  Report Type: Report from Study
  Country: None (occurrence: US)
  Receive Date: 20200701
  Receipt Date: 20200701
  Transmission Date: 20201103
  Serious: Yes (Other)
  Sender: FDA-Public Use
  Company Number: US-ABBVIE-20K-163-3410959-00

PATIENT
  Age: 30 Year
  Sex: Male
  Weight: 49.94 kg

DRUGS (2)
  1. FLUOXETINE HCL [Concomitant]
     Active Substance: FLUOXETINE HYDROCHLORIDE
     Indication: BIPOLAR DISORDER
  2. HUMIRA [Suspect]
     Active Substance: ADALIMUMAB
     Indication: CROHN^S DISEASE
     Route: 058
     Dates: start: 201912

REACTIONS (2)
  - Hyperchlorhydria [Unknown]
  - Barrett^s oesophagus [Recovering/Resolving]

NARRATIVE: CASE EVENT DATE: 202002
